FAERS Safety Report 10387563 (Version 1)
Quarter: 2014Q3

REPORT INFORMATION
  Report Type: Spontaneous
  Country: IT (occurrence: IT)
  Receive Date: 20140815
  Receipt Date: 20140815
  Transmission Date: 20150326
  Serious: Yes (Other)
  Sender: FDA-Public Use
  Company Number: IT-ACTAVIS-2014-17587

PATIENT
  Age: 58 Year
  Sex: Female
  Weight: 56 kg

DRUGS (3)
  1. DOCETAXEL (UNKNOWN) [Suspect]
     Active Substance: DOCETAXEL
     Indication: INVASIVE DUCTAL BREAST CARCINOMA
     Dosage: 85 MG, CYCLICAL
     Route: 042
     Dates: start: 20140222, end: 20140419
  2. LUCEN                              /01479302/ [Concomitant]
     Indication: DUODENAL ULCER
     Dosage: UNK
     Route: 065
  3. DOCETAXEL (UNKNOWN) [Suspect]
     Active Substance: DOCETAXEL
     Dosage: 110 MG, CYCLICAL
     Route: 042
     Dates: start: 20140222, end: 20140419

REACTIONS (3)
  - Leukopenia [Recovering/Resolving]
  - Anaemia [Recovering/Resolving]
  - Neutropenia [Recovering/Resolving]

NARRATIVE: CASE EVENT DATE: 20140306
